FAERS Safety Report 21544251 (Version 1)
Quarter: 2022Q4

REPORT INFORMATION
  Report Type: Spontaneous
  Country: US (occurrence: US)
  Receive Date: 20221102
  Receipt Date: 20221102
  Transmission Date: 20230113
  Serious: Yes (Life-Threatening, Other)
  Sender: FDA-Public Use
  Company Number: US-FreseniusKabi-FK202214548

PATIENT
  Sex: Female
  Weight: 60.78 kg

DRUGS (1)
  1. DILAUDID [Suspect]
     Active Substance: HYDROMORPHONE HYDROCHLORIDE
     Indication: Pain

REACTIONS (3)
  - Emergency care [Unknown]
  - Choking sensation [Unknown]
  - Therapeutic product effect decreased [Unknown]
